FAERS Safety Report 10585468 (Version 1)
Quarter: 2014Q4

REPORT INFORMATION
  Report Type: Spontaneous
  Country: US (occurrence: US)
  Receive Date: 20141114
  Receipt Date: 20141114
  Transmission Date: 20150529
  Serious: No
  Sender: FDA-Public Use
  Company Number: US-GLAXOSMITHKLINE-US2014009241

PATIENT
  Sex: Female

DRUGS (2)
  1. RYTHMOL SR [Suspect]
     Active Substance: PROPAFENONE HYDROCHLORIDE
     Indication: SUPRAVENTRICULAR TACHYCARDIA
     Dosage: UNK UNK, BID
     Route: 048
     Dates: start: 2004, end: 2004
  2. PROPAFENONE HYDROCHLORIDE TABLET [Suspect]
     Active Substance: PROPAFENONE HYDROCHLORIDE
     Indication: SUPRAVENTRICULAR TACHYCARDIA
     Dosage: UNK
     Route: 048
     Dates: start: 2004, end: 2004

REACTIONS (7)
  - Ill-defined disorder [Recovered/Resolved]
  - Drug effect decreased [None]
  - Condition aggravated [Recovered/Resolved]
  - Drug ineffective [Recovered/Resolved]
  - Heart rate irregular [Recovered/Resolved]
  - Product substitution issue [None]
  - Dyspnoea [Recovered/Resolved]

NARRATIVE: CASE EVENT DATE: 2004
